FAERS Safety Report 7109361-6 (Version None)
Quarter: 2010Q4

REPORT INFORMATION
  Report Type: 
  Country: None (occurrence: None)
  Receive Date: 20101118
  Receipt Date: 20101109
  Transmission Date: 20110411
  Serious: Yes (Hospitalization)
  Sender: FDA-Public Use
  Company Number: US-BIOGENIDEC-2010BI032382

PATIENT
  Age: 65 Year
  Sex: Female

DRUGS (2)
  1. AVONEX [Suspect]
     Indication: MULTIPLE SCLEROSIS
     Route: 030
     Dates: end: 20100530
  2. AVONEX [Suspect]
     Route: 030
     Dates: start: 19990301

REACTIONS (9)
  - ADVERSE EVENT [None]
  - BACTERIAL DISEASE CARRIER [None]
  - DECUBITUS ULCER [None]
  - FEMORAL NECK FRACTURE [None]
  - MOBILITY DECREASED [None]
  - MUSCULAR WEAKNESS [None]
  - OPTIC NEURITIS [None]
  - OSTEOPOROSIS [None]
  - VISION BLURRED [None]
